FAERS Safety Report 19230428 (Version 2)
Quarter: 2021Q2

REPORT INFORMATION
  Report Type: Spontaneous
  Country: US (occurrence: US)
  Receive Date: 20210507
  Receipt Date: 20210512
  Transmission Date: 20210717
  Serious: No
  Sender: FDA-Public Use
  Company Number: US-ASTRAZENECA-2021A400010

PATIENT
  Sex: Male

DRUGS (5)
  1. BYDUREON BCISE [Suspect]
     Active Substance: EXENATIDE
     Route: 058
  2. BYDUREON [Suspect]
     Active Substance: EXENATIDE
     Dosage: UNKNOWN
     Route: 065
  3. BYETTA [Suspect]
     Active Substance: EXENATIDE
     Dosage: UNKNOWN
     Route: 065
  4. HUMALOG [Concomitant]
     Active Substance: INSULIN LISPRO
  5. LONG ACTING INSULIN, UNKNOWN [Concomitant]

REACTIONS (7)
  - Wrong technique in device usage process [Recovered/Resolved]
  - Blood glucose abnormal [Unknown]
  - Fine motor skill dysfunction [Not Recovered/Not Resolved]
  - Blood glucose fluctuation [Unknown]
  - Neuropathy peripheral [Not Recovered/Not Resolved]
  - Injection site pain [Unknown]
  - Device leakage [Not Recovered/Not Resolved]
